FAERS Safety Report 6621006-8 (Version None)
Quarter: 2010Q1

REPORT INFORMATION
  Report Type: 
  Country: None (occurrence: None)
  Receive Date: 20100309
  Receipt Date: 20100303
  Transmission Date: 20100710
  Serious: Yes (Hospitalization)
  Sender: FDA-Public Use
  Company Number: US-RB-003971-10

PATIENT
  Age: 44 Year
  Sex: Female

DRUGS (2)
  1. SUBOXONE [Suspect]
     Route: 060
     Dates: start: 20100101
  2. SUBOXONE [Suspect]
     Route: 060
     Dates: start: 20090701, end: 20091123

REACTIONS (2)
  - OSTEOMYELITIS [None]
  - PAIN IN JAW [None]
